FAERS Safety Report 16247002 (Version 3)
Quarter: 2019Q2

REPORT INFORMATION
  Report Type: Spontaneous
  Country: US (occurrence: US)
  Receive Date: 20190427
  Receipt Date: 20190614
  Transmission Date: 20190711
  Serious: Yes (Other)
  Sender: FDA-Public Use
  Company Number: US-TEVA-2019-US-1040759

PATIENT
  Age: 44 Year
  Sex: Female

DRUGS (1)
  1. COPAXONE [Suspect]
     Active Substance: GLATIRAMER ACETATE
     Indication: MULTIPLE SCLEROSIS
     Route: 058
     Dates: start: 20190215, end: 20190415

REACTIONS (15)
  - Rash [Unknown]
  - Injection site mass [Unknown]
  - Contusion [Unknown]
  - Weight decreased [Unknown]
  - Vaginal haemorrhage [Unknown]
  - Herpes zoster [Unknown]
  - Chest pain [Unknown]
  - Dysphagia [Unknown]
  - Injection site bruising [Unknown]
  - Fall [Unknown]
  - Wound [Unknown]
  - Head injury [Unknown]
  - Amenorrhoea [Unknown]
  - Bone pain [Unknown]
  - Scab [Unknown]

NARRATIVE: CASE EVENT DATE: 2019
